FAERS Safety Report 20824889 (Version 10)
Quarter: 2022Q4

REPORT INFORMATION
  Report Type: Report from Study
  Country: US (occurrence: US)
  Receive Date: 20220513
  Receipt Date: 20221124
  Transmission Date: 20230113
  Serious: Yes (Other)
  Sender: FDA-Public Use
  Company Number: US-BEH-2022145421

PATIENT
  Age: 20 Year
  Sex: Female
  Weight: 104.31 kg

DRUGS (11)
  1. HIZENTRA [Suspect]
     Active Substance: HUMAN IMMUNOGLOBULIN G
     Indication: Primary immunodeficiency syndrome
     Dosage: 10 GRAM, QW
     Route: 058
     Dates: start: 20220509, end: 2022
  2. HIZENTRA [Suspect]
     Active Substance: HUMAN IMMUNOGLOBULIN G
     Dosage: UNK
     Route: 042
     Dates: start: 202205
  3. HIZENTRA [Suspect]
     Active Substance: HUMAN IMMUNOGLOBULIN G
     Dosage: UNK
     Route: 065
     Dates: start: 20220516
  4. HIZENTRA [Suspect]
     Active Substance: HUMAN IMMUNOGLOBULIN G
     Dosage: UNK
     Route: 065
     Dates: start: 20220621
  5. HIZENTRA [Suspect]
     Active Substance: HUMAN IMMUNOGLOBULIN G
     Dosage: UNK
     Route: 065
     Dates: start: 20220718
  6. HIZENTRA [Suspect]
     Active Substance: HUMAN IMMUNOGLOBULIN G
     Dosage: UNK
     Route: 065
     Dates: start: 20220724
  7. BENADRYL [Concomitant]
     Active Substance: DIPHENHYDRAMINE HYDROCHLORIDE
     Indication: Premedication
     Dosage: UNK
     Dates: start: 20220509
  8. TYLENOL [Concomitant]
     Active Substance: ACETAMINOPHEN
     Indication: Premedication
     Dosage: UNK
     Dates: start: 20220509
  9. CALAMINE [Concomitant]
     Active Substance: CALAMINE\FERRIC OXIDE RED\ZINC OXIDE
  10. LIDOCAINE [Concomitant]
     Active Substance: LIDOCAINE
     Indication: Premedication
  11. LIDOCAINE [Concomitant]
     Active Substance: LIDOCAINE
     Indication: Premedication

REACTIONS (74)
  - Influenza like illness [Recovered/Resolved]
  - Pyrexia [Recovered/Resolved]
  - Migraine [Recovered/Resolved]
  - Nausea [Recovered/Resolved]
  - Vomiting [Recovered/Resolved]
  - Injection site warmth [Recovered/Resolved]
  - Injection site inflammation [Recovered/Resolved]
  - Injection site bruising [Recovered/Resolved]
  - Headache [Recovered/Resolved]
  - Nausea [Recovered/Resolved]
  - Vomiting [Recovered/Resolved]
  - No adverse event [Recovered/Resolved]
  - Off label use [Recovered/Resolved]
  - Infusion site vesicles [Unknown]
  - Infusion site urticaria [Unknown]
  - Infusion site erythema [Unknown]
  - Infusion site pruritus [Not Recovered/Not Resolved]
  - Infusion site pain [Unknown]
  - Infusion site pain [Unknown]
  - Sluggishness [Not Recovered/Not Resolved]
  - Infusion site haemorrhage [Unknown]
  - Infusion site discharge [Unknown]
  - Infusion site extravasation [Recovered/Resolved]
  - Fatigue [Unknown]
  - No adverse event [Unknown]
  - Product contamination physical [Unknown]
  - Product container issue [Unknown]
  - Product distribution issue [Unknown]
  - Influenza [Recovering/Resolving]
  - Nausea [Recovered/Resolved]
  - Migraine [Not Recovered/Not Resolved]
  - Drug ineffective [Unknown]
  - Infusion site extravasation [Recovered/Resolved]
  - Dermatitis contact [Unknown]
  - Pruritus [Unknown]
  - Infection [Unknown]
  - Nausea [Unknown]
  - Vomiting [Unknown]
  - Pyrexia [Unknown]
  - Infusion site extravasation [Unknown]
  - Infusion site pain [Unknown]
  - Infusion site urticaria [Unknown]
  - Rash papular [Unknown]
  - Skin weeping [Recovered/Resolved]
  - Induration [Unknown]
  - Infusion site mass [Unknown]
  - Infusion site bruising [Unknown]
  - Infusion site haemorrhage [Unknown]
  - Pain [Unknown]
  - Multiple use of single-use product [Unknown]
  - Infusion site extravasation [Unknown]
  - Multiple use of single-use product [Recovered/Resolved]
  - Nausea [Recovered/Resolved]
  - Vomiting [Recovered/Resolved]
  - Pyrexia [Recovered/Resolved]
  - Infusion site extravasation [Recovered/Resolved]
  - Infusion site pain [Recovered/Resolved]
  - Infusion site urticaria [Recovered/Resolved]
  - Rash papular [Recovered/Resolved]
  - Induration [Recovered/Resolved]
  - Crying [Unknown]
  - Infusion site mass [Recovered/Resolved]
  - Infusion site bruising [Recovered/Resolved]
  - Infusion site haemorrhage [Recovered/Resolved]
  - Pain [Recovered/Resolved]
  - Multiple use of single-use product [Recovered/Resolved]
  - Infusion site extravasation [Recovered/Resolved]
  - Multiple use of single-use product [Unknown]
  - Scar [Unknown]
  - Malaise [Unknown]
  - Sinusitis [Not Recovered/Not Resolved]
  - Pain [Not Recovered/Not Resolved]
  - No adverse event [Unknown]
  - Therapy cessation [Unknown]

NARRATIVE: CASE EVENT DATE: 20220509
